FAERS Safety Report 9677984 (Version 1)
Quarter: 2013Q4

REPORT INFORMATION
  Report Type: Spontaneous
  Country: US (occurrence: US)
  Receive Date: 20131108
  Receipt Date: 20131108
  Transmission Date: 20140711
  Serious: Yes (Hospitalization)
  Sender: FDA-Public Use
  Company Number: US-BAYER-2013-134646

PATIENT
  Age: 49 Year
  Sex: Female
  Weight: 192.74 kg

DRUGS (22)
  1. YASMIN [Suspect]
  2. PULMICORT [Concomitant]
     Dosage: LONG TERM USE
  3. XOPENEX [Concomitant]
     Dosage: LONG TERM USE
  4. ADVAIR [Concomitant]
  5. MAXAIR [Concomitant]
  6. LIPITOR [Concomitant]
     Dosage: 20 MG, UNK
  7. ASPIRIN [Concomitant]
     Dosage: 81 MG, UNK
  8. PROVIGIL [Concomitant]
     Dosage: 400 MG, UNK
  9. KLONOPIN [Concomitant]
     Dosage: 1MG MORNING; 2MG EVENING
  10. PAMELOR [Concomitant]
     Dosage: 100 MG, UNK
  11. THEO-DUR [Concomitant]
  12. TOPAMAX [Concomitant]
     Dosage: 500 MG, UNK
  13. LYRICA [Concomitant]
     Dosage: 150MG MORNING; 75MG NOON; 300MG EVENING
  14. METFORMIN [Concomitant]
     Dosage: 1000 MG, BID
  15. LEVOTHYROXINE [Concomitant]
     Dosage: 150 MCG/24HR, UNK
  16. FISH OIL [Concomitant]
     Dosage: 3000 MG, UNK
  17. GEODON [Concomitant]
     Dosage: 6 MG, UNK
  18. NORTRIPTYLINE [Concomitant]
     Dosage: 50 MG, UNK
  19. MOBIC [Concomitant]
     Dosage: 15 MG, UNK
  20. AXERT [Concomitant]
     Indication: MIGRAINE
     Dosage: 12.5 MG, PRN
  21. ADVIL [Concomitant]
     Dosage: AS NEEDED
  22. TIZANIDINE [Concomitant]
     Dosage: 4 MG, UNK

REACTIONS (2)
  - Pulmonary embolism [Recovered/Resolved]
  - Pulmonary embolism [Recovered/Resolved]
